FAERS Safety Report 4433714-8 (Version None)
Quarter: 2004Q3

REPORT INFORMATION
  Report Type: 
  Country: None (occurrence: None)
  Receive Date: 20040825
  Receipt Date: 20040825
  Transmission Date: 20050211
  Serious: No
  Sender: FDA-Public Use
  Company Number: None

PATIENT

DRUGS (1)
  1. VECURONIUM 10 MG VIAL BEDFORD [Suspect]

REACTIONS (1)
  - DRUG INEFFECTIVE [None]
